FAERS Safety Report 13845252 (Version 1)
Quarter: 2017Q3

REPORT INFORMATION
  Report Type: Spontaneous
  Country: FR (occurrence: FR)
  Receive Date: 20170808
  Receipt Date: 20170808
  Transmission Date: 20171127
  Serious: Yes (Other)
  Sender: FDA-Public Use
  Company Number: FR-SA-2017SA141132

PATIENT
  Age: 84 Year
  Sex: Male

DRUGS (2)
  1. IRBESARTAN HYDROCHLOROTHIAZIDE ZENTIVA [Suspect]
     Active Substance: HYDROCHLOROTHIAZIDE\IRBESARTAN
     Route: 048
  2. RASILEZ HCT [Concomitant]
     Active Substance: ALISKIREN\HYDROCHLOROTHIAZIDE

REACTIONS (1)
  - Heart rate decreased [Unknown]
